FAERS Safety Report 14557242 (Version 2)
Quarter: 2018Q2

REPORT INFORMATION
  Report Type: Spontaneous
  Country: DE (occurrence: DE)
  Receive Date: 20180221
  Receipt Date: 20180420
  Transmission Date: 20180711
  Serious: Yes (Other)
  Sender: FDA-Public Use
  Company Number: DE-AUROBINDO-AUR-APL-2018-008656

PATIENT
  Age: 7 Month

DRUGS (5)
  1. BOSENTAN. [Suspect]
     Active Substance: BOSENTAN
     Indication: PULMONARY HYPERTENSION
     Dosage: UNK
     Route: 065
  2. SILDENAFIL. [Suspect]
     Active Substance: SILDENAFIL
     Indication: CONGENITAL DIAPHRAGMATIC HERNIA
     Dosage: 1.6 MG/KG/D
     Route: 042
  3. BOSENTAN. [Suspect]
     Active Substance: BOSENTAN
     Indication: CONGENITAL DIAPHRAGMATIC HERNIA
  4. SILDENAFIL. [Suspect]
     Active Substance: SILDENAFIL
     Indication: CONGENITAL DIAPHRAGMATIC HERNIA
     Dosage: INFUSION OF 1.6 MG/KG/D, INTRAVENOUS SILDENAFIL WAS SWITCHED TO ORAL MEDICATION
     Route: 048
  5. SILDENAFIL. [Suspect]
     Active Substance: SILDENAFIL
     Dosage: 0.4  MG/KG/D
     Route: 042

REACTIONS (1)
  - Respiratory failure [Recovering/Resolving]
